FAERS Safety Report 4689988-1 (Version None)
Quarter: 2005Q2

REPORT INFORMATION
  Report Type: 
  Country: None (occurrence: None)
  Receive Date: 20050608
  Receipt Date: 20040527
  Transmission Date: 20051028
  Serious: Yes (Other)
  Sender: FDA-Public Use
  Company Number: 369447

PATIENT

DRUGS (3)
  1. ACCUTANE [Suspect]
     Indication: ACNE CYSTIC
     Dosage: 40 MG DAILY ORAL
     Route: 048
     Dates: start: 20040325, end: 20040526
  2. BIRTH CONTROL PILLS (ORAL CONTRACEPTIVE NOS) [Concomitant]
  3. MIRCETTE (DESOGESTREL/ETHINYL ESTRADIOL) [Concomitant]

REACTIONS (1)
  - ABORTION SPONTANEOUS [None]
